FAERS Safety Report 20019828 (Version 2)
Quarter: 2021Q4

REPORT INFORMATION
  Report Type: Spontaneous
  Country: US (occurrence: US)
  Receive Date: 20211101
  Receipt Date: 20211208
  Transmission Date: 20220303
  Serious: Yes (Hospitalization, Other)
  Sender: FDA-Public Use
  Company Number: US-JUBILANT CADISTA PHARMACEUTICALS-2021JUB00385

PATIENT
  Age: 76 Year
  Sex: Female
  Weight: 88.889 kg

DRUGS (14)
  1. LOSARTAN POTASSIUM AND HYDROCHLOROTHIAZIDE [Suspect]
     Active Substance: HYDROCHLOROTHIAZIDE\LOSARTAN POTASSIUM
     Dosage: UNK
     Dates: start: 20210524, end: 20210706
  2. SYNTHROID [Concomitant]
     Active Substance: LEVOTHYROXINE SODIUM
     Dosage: 25 ?G, 1X/DAY
     Route: 048
  3. METOPROLOL [Concomitant]
     Active Substance: METOPROLOL
     Dosage: 0.5 TABLETS, 2X/DAY (MORNING AND NIGHT)
  4. COENZYME Q10 [Concomitant]
     Active Substance: DIETARY SUPPLEMENT\UBIDECARENONE
     Dosage: 30 MG, 1X/DAY
     Route: 048
  5. LIDEX-E [Concomitant]
     Active Substance: FLUOCINONIDE
     Dosage: 1 APPLICATION, 1X/DAY AS NEEDED
     Route: 061
  6. THERA-M [Concomitant]
     Dosage: 1 TABLETS (9 MG-400 ?G), 1X/DAY
  7. NITROSTAT SL [Concomitant]
     Dosage: PLACE 0.4 MG, EVERY 5 MINUTES AS NEEDED
     Route: 060
  8. ADVAIR HFA [Concomitant]
     Active Substance: FLUTICASONE PROPIONATE\SALMETEROL XINAFOATE
     Dosage: 2 PUFFS INTO THE LUNGS, 2X/DAY AS NEEDED
  9. LASIX [Concomitant]
     Active Substance: FUROSEMIDE
     Dosage: 20 MG, 1X/DAY
     Route: 048
  10. NEURONTIN [Concomitant]
     Active Substance: GABAPENTIN
     Dosage: 100 MG, 1X/DAY
     Route: 048
  11. RHOPRESSA [Concomitant]
     Active Substance: NETARSUDIL MESYLATE
     Dosage: 1 DROP INTO THE RIGHT EYE, 1X/DAY
  12. POTASSIUM CHLORIDE [Concomitant]
     Active Substance: POTASSIUM CHLORIDE
     Dosage: UNK
     Dates: end: 20210708
  13. CRESTOR [Concomitant]
     Active Substance: ROSUVASTATIN CALCIUM
     Dosage: UNK
  14. CRESTOR [Concomitant]
     Active Substance: ROSUVASTATIN CALCIUM
     Dosage: 10 MG, 1X/DAY (NIGHTLY)
     Route: 048
     Dates: start: 20210708

REACTIONS (12)
  - Ischaemic stroke [Recovering/Resolving]
  - Atrial septal defect [Recovered/Resolved]
  - Right-to-left cardiac shunt [Recovered/Resolved]
  - Cardiac septal defect repair [Recovered/Resolved]
  - Acute kidney injury [Recovered/Resolved]
  - Type V hyperlipidaemia [Unknown]
  - Mobility decreased [Not Recovered/Not Resolved]
  - Oedema peripheral [Recovering/Resolving]
  - Essential hypertension [Unknown]
  - Sensory loss [Not Recovered/Not Resolved]
  - Sinus disorder [Not Recovered/Not Resolved]
  - Hypovolaemia [Unknown]

NARRATIVE: CASE EVENT DATE: 20210701
